FAERS Safety Report 10913190 (Version 1)
Quarter: 2015Q1

REPORT INFORMATION
  Report Type: Spontaneous
  Country: AT (occurrence: AT)
  Receive Date: 20150313
  Receipt Date: 20150313
  Transmission Date: 20150721
  Serious: Yes (Other)
  Sender: FDA-Public Use
  Company Number: AT-ACTELION-A-CH2015-114093

PATIENT
  Age: 65 Year
  Sex: Female

DRUGS (6)
  1. SINTROM [Concomitant]
     Active Substance: ACENOCOUMAROL
  2. OPSUMIT [Suspect]
     Active Substance: MACITENTAN
     Indication: PULMONARY HYPERTENSION
     Dosage: 10 MG, QD
     Route: 048
     Dates: start: 201411
  3. SYMBICORD [Concomitant]
     Active Substance: BUDESONIDE\FORMOTEROL
  4. LITALIR [Concomitant]
     Active Substance: HYDROXYUREA
  5. PROLIA [Concomitant]
     Active Substance: DENOSUMAB
  6. LASIX [Concomitant]
     Active Substance: FUROSEMIDE
     Dosage: 40 MG, UNK

REACTIONS (1)
  - Cerebrovascular accident [Unknown]

NARRATIVE: CASE EVENT DATE: 20150210
